FAERS Safety Report 11942644 (Version 1)
Quarter: 2016Q1

REPORT INFORMATION
  Report Type: Spontaneous
  Country: US (occurrence: US)
  Receive Date: 20160125
  Receipt Date: 20160125
  Transmission Date: 20160526
  Serious: No
  Sender: FDA-Public Use
  Company Number: US-UNITED THERAPEUTICS-UNT-2015-008428

PATIENT
  Sex: Female
  Weight: 84.81 kg

DRUGS (3)
  1. OPSUMIT [Concomitant]
     Active Substance: MACITENTAN
     Indication: PRODUCT USED FOR UNKNOWN INDICATION
  2. REMODULIN [Suspect]
     Active Substance: TREPROSTINIL
     Dosage: 0.050 ?G/KG/MIN, CONTINUING
     Route: 058
     Dates: start: 20141209
  3. REMODULIN [Suspect]
     Active Substance: TREPROSTINIL
     Indication: PULMONARY ARTERIAL HYPERTENSION
     Dosage: 0.050 ?G/KG/MIN, CONTINUING
     Route: 058
     Dates: start: 20140817

REACTIONS (9)
  - Dyspnoea [Recovered/Resolved]
  - Infusion site pain [Unknown]
  - Infusion site discharge [Recovered/Resolved]
  - Decreased appetite [Unknown]
  - Device dislocation [Recovered/Resolved]
  - Tachycardia [Unknown]
  - Infusion site induration [Not Recovered/Not Resolved]
  - Infusion site infection [Unknown]
  - Asthenia [Unknown]
